FAERS Safety Report 18700095 (Version 6)
Quarter: 2025Q2

REPORT INFORMATION
  Report Type: Spontaneous
  Country: JP (occurrence: JP)
  Receive Date: 20210104
  Receipt Date: 20250528
  Transmission Date: 20250716
  Serious: Yes (Death, Hospitalization, Disabling, Other)
  Sender: BRISTOL-MYERS SQUIBB COMPANY
  Company Number: JP-BRISTOL-MYERS SQUIBB COMPANY-BMS-2021-000004

PATIENT
  Age: 76 Year
  Sex: Male
  Weight: 59 kg

DRUGS (4)
  1. OPDIVO [Interacting]
     Active Substance: NIVOLUMAB
     Indication: Oesophageal carcinoma
     Route: 042
     Dates: start: 20201221, end: 20201221
  2. WARFARIN POTASSIUM [Interacting]
     Active Substance: WARFARIN POTASSIUM
     Indication: Cerebral infarction
     Dosage: 2.25 MILLIGRAM, QD
     Route: 048
  3. WARFARIN POTASSIUM [Interacting]
     Active Substance: WARFARIN POTASSIUM
     Indication: Embolic stroke
     Dosage: 2.25 MILLIGRAM, QD
     Route: 048
     Dates: start: 20201214, end: 20210101
  4. ASPIRIN [Interacting]
     Active Substance: ASPIRIN
     Indication: Myocardial infarction
     Dosage: 100 MILLIGRAM, QD
     Route: 048
     Dates: start: 20210101

REACTIONS (5)
  - Hepatic failure [Fatal]
  - Haematoma muscle [Recovered/Resolved with Sequelae]
  - Drug-device incompatibility [Unknown]
  - Drug interaction [Unknown]
  - Decreased immune responsiveness [Unknown]

NARRATIVE: CASE EVENT DATE: 20201221
